FAERS Safety Report 4521886-6 (Version None)
Quarter: 2004Q4

REPORT INFORMATION
  Report Type: 
  Country: None (occurrence: None)
  Receive Date: 20041206
  Receipt Date: 20041122
  Transmission Date: 20050328
  Serious: Yes (Other)
  Sender: FDA-Public Use
  Company Number: 2004-122673-NL

PATIENT
  Age: 23 Year
  Sex: Female
  Weight: 54.4 kg

DRUGS (4)
  1. NUVARING [Suspect]
     Indication: CONTRACEPTION
     Dosage: VAGINAL
     Route: 067
     Dates: start: 20041029, end: 20041118
  2. NUVARING [Suspect]
     Indication: MENSTRUAL DISORDER
     Dosage: VAGINAL
     Route: 067
     Dates: start: 20041029, end: 20041118
  3. NUVARING [Suspect]
     Indication: MENSTRUATION IRREGULAR
     Dosage: VAGINAL
     Route: 067
     Dates: start: 20041029, end: 20041118
  4. ADVIL [Concomitant]

REACTIONS (6)
  - ABDOMINAL DISCOMFORT [None]
  - ABDOMINAL PAIN [None]
  - CERVIX CARCINOMA [None]
  - DRUG INEFFECTIVE [None]
  - OVARIAN CYST [None]
  - UTERINE LEIOMYOMA [None]
